FAERS Safety Report 6230224-2 (Version None)
Quarter: 2009Q2

REPORT INFORMATION
  Report Type: 
  Country: None (occurrence: None)
  Receive Date: 20090615
  Receipt Date: 20090610
  Transmission Date: 20091009
  Serious: Yes (Life-Threatening, Hospitalization, Other)
  Sender: FDA-Public Use
  Company Number: US-CELGENEUS-163-20785-09041420

PATIENT
  Sex: Female

DRUGS (23)
  1. THALOMID [Suspect]
     Indication: MULTIPLE MYELOMA
     Route: 048
     Dates: start: 20080501, end: 20080701
  2. THALOMID [Suspect]
     Route: 048
     Dates: start: 20080805, end: 20080901
  3. THALOMID [Suspect]
     Route: 048
     Dates: end: 20081201
  4. THALOMID [Suspect]
     Route: 048
     Dates: end: 20090409
  5. CALCITRIOL [Concomitant]
     Indication: DRUG USE FOR UNKNOWN INDICATION
     Route: 065
  6. COLACE [Concomitant]
     Indication: DRUG USE FOR UNKNOWN INDICATION
     Route: 065
  7. DEXAMETHASONE [Concomitant]
     Indication: DRUG USE FOR UNKNOWN INDICATION
     Route: 065
  8. GANCICLOVIR [Concomitant]
     Indication: DRUG USE FOR UNKNOWN INDICATION
     Route: 065
  9. SYNTHROID [Concomitant]
     Indication: DRUG USE FOR UNKNOWN INDICATION
     Route: 065
  10. LORAZEPAM [Concomitant]
     Indication: DRUG USE FOR UNKNOWN INDICATION
     Route: 065
  11. NEPHROVITE [Concomitant]
     Indication: DRUG USE FOR UNKNOWN INDICATION
     Route: 065
  12. PAROXETINE HCL [Concomitant]
     Indication: DRUG USE FOR UNKNOWN INDICATION
     Route: 065
  13. PREDNISONE [Concomitant]
     Indication: DRUG USE FOR UNKNOWN INDICATION
     Route: 065
  14. RENVELA [Concomitant]
     Indication: DRUG USE FOR UNKNOWN INDICATION
     Route: 065
  15. PRILOSEC [Concomitant]
     Indication: DRUG USE FOR UNKNOWN INDICATION
     Route: 065
  16. COUMADIN [Concomitant]
     Indication: DRUG USE FOR UNKNOWN INDICATION
     Route: 065
  17. ACETAMINOPHEN AND HYDROCODONE BITARTRATE [Concomitant]
     Indication: PAIN
     Route: 048
  18. LEVOTHYROXINE SODIUM [Concomitant]
     Indication: DRUG USE FOR UNKNOWN INDICATION
     Route: 048
  19. OMEPRAZOLE [Concomitant]
     Indication: DRUG USE FOR UNKNOWN INDICATION
     Route: 048
  20. PROZAC [Concomitant]
     Indication: DRUG USE FOR UNKNOWN INDICATION
     Route: 048
  21. ERYTHROPOETIN [Concomitant]
     Route: 065
  22. VITAMIN K [Concomitant]
     Indication: DRUG USE FOR UNKNOWN INDICATION
     Route: 065
  23. THIAMINE HCL [Concomitant]
     Indication: DRUG USE FOR UNKNOWN INDICATION
     Route: 065

REACTIONS (5)
  - ABDOMINAL ABSCESS [None]
  - BLOOD MAGNESIUM DECREASED [None]
  - CONVULSION [None]
  - HYPOCALCAEMIA [None]
  - LARGE INTESTINE PERFORATION [None]
